FAERS Safety Report 15533475 (Version 3)
Quarter: 2018Q4

REPORT INFORMATION
  Report Type: Report from Study
  Country: JP (occurrence: JP)
  Receive Date: 20181019
  Receipt Date: 20181228
  Transmission Date: 20190205
  Serious: Yes (Hospitalization)
  Sender: FDA-Public Use
  Company Number: JP-PFIZER INC-2018421331

PATIENT
  Age: 38 Year
  Sex: Male
  Weight: 60.9 kg

DRUGS (11)
  1. CYTARABINE. [Suspect]
     Active Substance: CYTARABINE
     Dosage: 3516 G, OVER 3 HOURS TWICE DAILY ON DAY 1 TO DAY 5
     Route: 042
     Dates: start: 20180905, end: 20180909
  2. CLOSTRIDIUM BUTYRICUM [Concomitant]
     Active Substance: CLOSTRIDIUM BUTYRICUM SPORES STRAIN M-55
     Dosage: 3 G, UNK
     Dates: start: 20180725
  3. TEICOPLANIN [Concomitant]
     Active Substance: TEICOPLANIN
     Dosage: 1200 MG, UNK
     Dates: start: 20181001, end: 20181002
  4. PLACEBO [Suspect]
     Active Substance: UNSPECIFIED INGREDIENT
     Indication: ACUTE MYELOID LEUKAEMIA
     Dosage: UNK, ONCE DAILY CONTINUOUS
     Route: 048
     Dates: start: 20180717, end: 20181001
  5. URSODEOXYCHOLIC ACID [Concomitant]
     Active Substance: URSODIOL
     Dosage: 600 MG, UNK
     Dates: start: 20180907
  6. ITRACONAZOLE. [Concomitant]
     Active Substance: ITRACONAZOLE
     Dosage: 200 MG, UNK
     Dates: start: 20180905, end: 20181003
  7. TAZOBACTAM PIPERACILLIN HYDRATE [Concomitant]
     Dosage: 18 G, UNK
     Dates: start: 20180922, end: 20181003
  8. DAUNORUBICIN HCL [Suspect]
     Active Substance: DAUNORUBICIN HYDROCHLORIDE
     Indication: ACUTE MYELOID LEUKAEMIA
     Dosage: 106.86 MG, DAILY BY CONTINUOUS INFUSION
     Route: 041
     Dates: start: 20180717, end: 20180719
  9. ESOMEPRAZOLE MAGNESIUM HYDRATE [Concomitant]
     Active Substance: ESOMEPRAZOLE MAGNESIUM
     Dosage: 20 MG, UNK
     Dates: start: 20180905
  10. CYTARABINE. [Suspect]
     Active Substance: CYTARABINE
     Indication: ACUTE MYELOID LEUKAEMIA
     Dosage: 178.1 MG, DAILY BY CONTINUOUS INFUSION, FORMULATION IS SOLUTION
     Route: 041
     Dates: start: 20180717, end: 20180723
  11. RINDERON A [Concomitant]
     Active Substance: BETAMETHASONE SODIUM PHOSPHATE\NEOMYCIN SULFATE
     Dosage: 4 DROP, UNK
     Dates: start: 20180905, end: 20181004

REACTIONS (1)
  - Herpes zoster disseminated [Recovered/Resolved]

NARRATIVE: CASE EVENT DATE: 20181011
